FAERS Safety Report 16920661 (Version 4)
Quarter: 2020Q3

REPORT INFORMATION
  Report Type: Spontaneous
  Country: US (occurrence: US)
  Receive Date: 20191015
  Receipt Date: 20200701
  Transmission Date: 20201102
  Serious: Yes (Other)
  Sender: FDA-Public Use
  Company Number: US-JNJFOC-20191010011

PATIENT
  Age: 47 Year
  Sex: Female
  Weight: 93.98 kg

DRUGS (2)
  1. REMICADE [Suspect]
     Active Substance: INFLIXIMAB
     Indication: RHEUMATOID ARTHRITIS
     Route: 042
     Dates: start: 201907
  2. ESTROGEN [Concomitant]
     Active Substance: ESTROGENS
     Indication: OVARIAN CYST
     Route: 065
     Dates: start: 2015

REACTIONS (6)
  - Arthralgia [Not Recovered/Not Resolved]
  - Oropharyngeal pain [Not Recovered/Not Resolved]
  - Joint swelling [Not Recovered/Not Resolved]
  - Headache [Not Recovered/Not Resolved]
  - Ovarian cyst [Unknown]
  - Fatigue [Unknown]

NARRATIVE: CASE EVENT DATE: 201908
